FAERS Safety Report 8907360 (Version 1)
Quarter: 2012Q4

REPORT INFORMATION
  Report Type: 
  Country: US (occurrence: US)
  Receive Date: 20121113
  Receipt Date: 20121113
  Transmission Date: 20130627
  Serious: No
  Sender: FDA-Public Use
  Company Number: US-AMGEN-USASP2012010458

PATIENT
  Age: 55 Year
  Sex: Female
  Weight: 68.93 kg

DRUGS (9)
  1. ENBREL [Suspect]
     Indication: PRODUCT USED FOR UNKNOWN INDICATION
     Dosage: 50 mg, qwk
     Route: 058
  2. ATIVAN [Concomitant]
     Dosage: 0.5 mg, UNK
  3. PREDNISONE [Concomitant]
     Dosage: 5 mg, UNK
  4. VICODIN [Concomitant]
     Dosage: UNK
  5. ARAVA [Concomitant]
     Dosage: 10 mg, UNK
  6. TRAMADOL HCL [Concomitant]
     Dosage: 50 mg, UNK
  7. BENAZEPRIL W/HYDROCHLOROTHIAZIDE [Concomitant]
     Dosage: UNK
  8. PREVACID [Concomitant]
     Dosage: 15 mg, UNK
  9. FOLIC ACID [Concomitant]
     Dosage: UNK

REACTIONS (2)
  - Haemorrhagic diathesis [Unknown]
  - Increased tendency to bruise [Unknown]
